FAERS Safety Report 5624052-6 (Version None)
Quarter: 2008Q1

REPORT INFORMATION
  Report Type: 
  Country: None (occurrence: None)
  Receive Date: 20080213
  Receipt Date: 20070130
  Transmission Date: 20080703
  Serious: No
  Sender: FDA-Public Use
  Company Number: US-KINGPHARMUSA00001-K200601004

PATIENT

DRUGS (4)
  1. EPIPEN JR. [Suspect]
     Dosage: .15 MG, SINGLE
     Route: 030
     Dates: start: 20060720, end: 20060720
  2. PRENATAL VITAMINS [Concomitant]
     Indication: PREGNANCY
     Dosage: 1 TABLET, QD
     Route: 048
     Dates: start: 20060201
  3. FOLIC ACID [Concomitant]
     Indication: PROPHYLAXIS
     Dosage: 4 MG, QD
     Route: 048
     Dates: start: 20060601
  4. ASPIRIN [Concomitant]
     Indication: PROPHYLAXIS
     Dosage: 81 MG, QD
     Route: 048
     Dates: start: 20060601

REACTIONS (6)
  - ACCIDENTAL NEEDLE STICK [None]
  - DELIVERY [None]
  - DIZZINESS [None]
  - HAEMORRHAGE [None]
  - NERVOUSNESS [None]
  - PREGNANCY [None]
